FAERS Safety Report 8170486-8 (Version None)
Quarter: 2012Q1

REPORT INFORMATION
  Report Type: 
  Country: None (occurrence: None)
  Receive Date: 20120228
  Receipt Date: 20120221
  Transmission Date: 20120608
  Serious: Yes (Death, Other)
  Sender: FDA-Public Use
  Company Number: US-AMGEN-USASP2012002429

PATIENT
  Age: 56 Year
  Sex: Female

DRUGS (1)
  1. ENBREL [Suspect]
     Indication: RHEUMATOID ARTHRITIS
     Dosage: UNK
     Dates: start: 20100208, end: 20110928

REACTIONS (4)
  - ALCOHOLIC LIVER DISEASE [None]
  - RESPIRATORY FAILURE [None]
  - RENAL FAILURE [None]
  - CEREBROVASCULAR ACCIDENT [None]
